FAERS Safety Report 20418921 (Version 1)
Quarter: 2022Q1

REPORT INFORMATION
  Report Type: Spontaneous
  Country: FR (occurrence: FR)
  Receive Date: 20220202
  Receipt Date: 20220202
  Transmission Date: 20220424
  Serious: Yes (Death, Other)
  Sender: FDA-Public Use
  Company Number: FR-SUN PHARMACEUTICAL INDUSTRIES LTD-2022RR-325665

PATIENT
  Age: 42 Year
  Sex: Female

DRUGS (2)
  1. PEMETREXED [Suspect]
     Active Substance: PEMETREXED
     Indication: Interstitial lung disease
     Dosage: UNK,  FOUR CYCLES
     Route: 065
  2. CARBOPLATIN [Suspect]
     Active Substance: CARBOPLATIN
     Indication: Interstitial lung disease
     Dosage: 5 MG/ML/MIN
     Route: 065

REACTIONS (2)
  - Condition aggravated [Fatal]
  - Disease progression [Unknown]

NARRATIVE: CASE EVENT DATE: 20200601
